FAERS Safety Report 18257984 (Version 2)
Quarter: 2020Q3

REPORT INFORMATION
  Report Type: Report from Study
  Country: GT (occurrence: GT)
  Receive Date: 20200911
  Receipt Date: 20200917
  Transmission Date: 20201103
  Serious: Yes (Other)
  Sender: FDA-Public Use
  Company Number: NVSC2020GT246849

PATIENT
  Age: 82 Year
  Sex: Female

DRUGS (2)
  1. EXFORGE [Suspect]
     Active Substance: AMLODIPINE BESYLATE\VALSARTAN
     Indication: PRODUCT USED FOR UNKNOWN INDICATION
     Dosage: UNK (160/5 MG)
     Route: 065
  2. EXFORGE [Suspect]
     Active Substance: AMLODIPINE BESYLATE\VALSARTAN
     Dosage: UNK (160/10 MG)
     Route: 065

REACTIONS (6)
  - Malaise [Unknown]
  - COVID-19 [Unknown]
  - Blood pressure decreased [Unknown]
  - Drug ineffective [Unknown]
  - Nervous system disorder [Unknown]
  - Ill-defined disorder [Unknown]
